FAERS Safety Report 19798565 (Version 1)
Quarter: 2021Q3

REPORT INFORMATION
  Report Type: Spontaneous
  Country: CN (occurrence: CN)
  Receive Date: 20210907
  Receipt Date: 20210907
  Transmission Date: 20211014
  Serious: Yes (Hospitalization, Other)
  Sender: FDA-Public Use
  Company Number: CN-PFIZER INC-202101104446

PATIENT
  Age: 2 Year
  Sex: Female
  Weight: 10 kg

DRUGS (4)
  1. POTASSIUM SODIUM PEHYDROANDROANDROGRAPHOLIDE SUCCINATE [Suspect]
     Active Substance: POTASSIUM SODIUM DEHYDROANDROGRAPHOLIDE SUCCINATE
     Indication: NASOPHARYNGITIS
     Dosage: 40 MG, 1X/DAY
     Route: 041
     Dates: start: 20210820, end: 20210820
  2. SOLU?MEDROL [Suspect]
     Active Substance: METHYLPREDNISOLONE SODIUM SUCCINATE
     Indication: NASOPHARYNGITIS
     Dosage: 15 MG, 1X/DAY
     Route: 041
     Dates: start: 20210820, end: 20210820
  3. SOLU?MEDROL [Suspect]
     Active Substance: METHYLPREDNISOLONE SODIUM SUCCINATE
     Indication: ANTIINFLAMMATORY THERAPY
  4. GLUCOSE [Concomitant]
     Active Substance: DEXTROSE
     Indication: VEHICLE SOLUTION USE
     Dosage: 100.0 ML, 1X/DAY
     Route: 041
     Dates: start: 20210820, end: 20210820

REACTIONS (7)
  - Pruritus [Recovered/Resolved]
  - Rash maculo-papular [Recovered/Resolved]
  - Localised oedema [Recovered/Resolved]
  - Drug hypersensitivity [Recovered/Resolved]
  - Bronchitis [Unknown]
  - Eye oedema [Recovered/Resolved]
  - Eyelid oedema [Recovered/Resolved]

NARRATIVE: CASE EVENT DATE: 20210820
